FAERS Safety Report 8503079-0 (Version None)
Quarter: 2012Q2

REPORT INFORMATION
  Report Type: 
  Country: None (occurrence: None)
  Receive Date: 20120629
  Receipt Date: 20120626
  Transmission Date: 20120825
  Serious: Yes (Other)
  Sender: FDA-Public Use
  Company Number: 2012SP020784

PATIENT
  Age: 51 Year
  Sex: Male
  Weight: 90.6 kg

DRUGS (16)
  1. ASPIRIN [Concomitant]
  2. PLACEBO [Suspect]
     Indication: HEPATITIS C
     Dosage: 1 DF, BID, PO
     Route: 048
     Dates: start: 20111229, end: 20120118
  3. GS-9451 [Suspect]
     Indication: HEPATITIS C
     Dosage: 2 DF, QD, PO
     Route: 048
     Dates: start: 20120110, end: 20120313
  4. GS-9451 [Suspect]
     Indication: HEPATITIS C
     Dosage: 2 DF, QD, PO
     Route: 048
     Dates: start: 20111229, end: 20120118
  5. RANITIDINE [Concomitant]
  6. METOPROLOL TARTRATE [Concomitant]
  7. SULINDAC [Concomitant]
  8. RIBAVIRIN [Suspect]
     Indication: HEPATITIS C
     Dosage: 600 MG, BID, PO
     Route: 048
     Dates: start: 20111229, end: 20120118
  9. RIBAVIRIN [Suspect]
     Indication: HEPATITIS C
     Dosage: 600 MG, BID, PO
     Route: 048
     Dates: start: 20110119, end: 20120313
  10. ACETAMINOPHEN [Concomitant]
  11. CODEINE SUL TAB [Concomitant]
  12. GS-5885 [Suspect]
     Indication: HEPATITIS C
     Dosage: 3 DF, QD, PO
     Route: 048
     Dates: start: 20111229, end: 20120118
  13. GS-5885 [Suspect]
     Indication: HEPATITIS C
     Dosage: 3 DF, QD, PO
     Route: 048
     Dates: start: 20120119, end: 20120313
  14. CELEXA [Concomitant]
  15. ZITHROMAX [Concomitant]
  16. PEGINTERFERON ALFA-2A [Suspect]
     Indication: HEPATITIS C
     Dosage: 180 MCG, QW, SC
     Route: 058
     Dates: start: 20120119, end: 20120309

REACTIONS (29)
  - RASH PRURITIC [None]
  - SKIN LESION [None]
  - DERMATITIS ALLERGIC [None]
  - DEMYELINATION [None]
  - EXFOLIATIVE RASH [None]
  - SCAB [None]
  - STAPHYLOCOCCUS TEST POSITIVE [None]
  - MOTOR DYSFUNCTION [None]
  - CELLULITIS [None]
  - DRUG ERUPTION [None]
  - RASH MACULO-PAPULAR [None]
  - OTORRHOEA [None]
  - DERMATITIS ATOPIC [None]
  - EXCORIATION [None]
  - AURICULAR SWELLING [None]
  - EAR PAIN [None]
  - ABDOMINAL PAIN [None]
  - ORAL MUCOSA EROSION [None]
  - JOINT EFFUSION [None]
  - HORNER'S SYNDROME [None]
  - DRUG HYPERSENSITIVITY [None]
  - PERONEAL NERVE PALSY [None]
  - ORAL DISORDER [None]
  - EYELID PTOSIS [None]
  - SENSORIMOTOR DISORDER [None]
  - PARAESTHESIA [None]
  - FALL [None]
  - NEPHROLITHIASIS [None]
  - PERIPHERAL SENSORY NEUROPATHY [None]
